FAERS Safety Report 4404650-8 (Version None)
Quarter: 2004Q3

REPORT INFORMATION
  Report Type: 
  Country: None (occurrence: None)
  Receive Date: 20040720
  Receipt Date: 20040707
  Transmission Date: 20050211
  Serious: Yes (Hospitalization)
  Sender: FDA-Public Use
  Company Number: 175481

PATIENT
  Sex: Male
  Weight: 97.5234 kg

DRUGS (1)
  1. AVONEX [Suspect]
     Indication: MULTIPLE SCLEROSIS
     Dates: start: 20010101

REACTIONS (6)
  - ALOPECIA [None]
  - CEREBROVASCULAR ACCIDENT [None]
  - EXOSTOSIS [None]
  - INFLUENZA LIKE ILLNESS [None]
  - OEDEMA PERIPHERAL [None]
  - THERAPY NON-RESPONDER [None]
